FAERS Safety Report 12849989 (Version 3)
Quarter: 2017Q4

REPORT INFORMATION
  Report Type: Spontaneous
  Country: US (occurrence: US)
  Receive Date: 20161014
  Receipt Date: 20171027
  Transmission Date: 20180320
  Serious: No
  Sender: FDA-Public Use
  Company Number: US-ROCHE-1810965

PATIENT
  Sex: Male

DRUGS (8)
  1. ESBRIET [Suspect]
     Active Substance: PIRFENIDONE
     Indication: PRODUCT USED FOR UNKNOWN INDICATION
     Route: 048
     Dates: start: 20160407
  2. FINASTERIDE. [Concomitant]
     Active Substance: FINASTERIDE
  3. FLUOCINOLONE [Concomitant]
     Active Substance: FLUOCINOLONE
  4. BREO (UNK INGREDIENTS) [Concomitant]
  5. ATORVASTATIN [Concomitant]
     Active Substance: ATORVASTATIN
  6. HYDROCORTISONE VALERATE. [Concomitant]
     Active Substance: HYDROCORTISONE VALERATE
  7. PREDNISONE. [Concomitant]
     Active Substance: PREDNISONE
  8. ESBRIET [Suspect]
     Active Substance: PIRFENIDONE
     Route: 048
     Dates: start: 20160808

REACTIONS (1)
  - Rash [Unknown]
